FAERS Safety Report 14586644 (Version 1)
Quarter: 2018Q1

REPORT INFORMATION
  Report Type: Spontaneous
  Country: US (occurrence: US)
  Receive Date: 20180301
  Receipt Date: 20180301
  Transmission Date: 20180509
  Serious: No
  Sender: FDA-Public Use
  Company Number: US-VALIDUS PHARMACEUTICALS LLC-US-2017VAL001184

PATIENT

DRUGS (6)
  1. LASIX [Suspect]
     Active Substance: FUROSEMIDE
     Indication: CARDIAC FAILURE CONGESTIVE
     Dosage: UNK UNK, PRN
  2. LASIX [Suspect]
     Active Substance: FUROSEMIDE
     Dosage: UNK
     Dates: start: 20170821
  3. ACE INHIBITORS [Concomitant]
     Active Substance: UNSPECIFIED INGREDIENT
     Indication: PRODUCT USED FOR UNKNOWN INDICATION
     Dosage: UNK
  4. ACE INHIBITORS [Concomitant]
     Active Substance: UNSPECIFIED INGREDIENT
     Dosage: UNK (RAISED)
  5. LASIX [Suspect]
     Active Substance: FUROSEMIDE
     Dosage: 20 MG, QOD
  6. LASIX [Suspect]
     Active Substance: FUROSEMIDE
     Indication: CARDIAC FAILURE CONGESTIVE
     Dosage: 40 MG, UNK (SIX INJECTIONS)
     Route: 042
     Dates: start: 201707

REACTIONS (1)
  - Dehydration [Unknown]

NARRATIVE: CASE EVENT DATE: 201707
